FAERS Safety Report 20784730 (Version 6)
Quarter: 2022Q4

REPORT INFORMATION
  Report Type: Report from Study
  Country: CA (occurrence: CA)
  Receive Date: 20220504
  Receipt Date: 20221110
  Transmission Date: 20230113
  Serious: Yes (Other)
  Sender: FDA-Public Use
  Company Number: CA-OTSUKA-2021_008322

PATIENT
  Age: 27 Year
  Sex: Male

DRUGS (7)
  1. ARIPIPRAZOLE [Suspect]
     Active Substance: ARIPIPRAZOLE
     Indication: Product used for unknown indication
     Dosage: 400 MG EVERY 3 WEEKS
     Route: 030
     Dates: start: 20210326
  2. ARIPIPRAZOLE [Suspect]
     Active Substance: ARIPIPRAZOLE
     Dosage: 400 MG EVERY 2 WEEKS
     Route: 030
  3. ARIPIPRAZOLE [Suspect]
     Active Substance: ARIPIPRAZOLE
     Dosage: 400 Q 3 WEEKS
     Route: 030
     Dates: start: 20220803
  4. ARIPIPRAZOLE [Suspect]
     Active Substance: ARIPIPRAZOLE
     Indication: Product used for unknown indication
     Dosage: 10 MG, QD
     Route: 048
  5. ARIPIPRAZOLE [Suspect]
     Active Substance: ARIPIPRAZOLE
     Dosage: 5 MG, QD
     Route: 048
  6. VENLAFAXINE [Concomitant]
     Active Substance: VENLAFAXINE HYDROCHLORIDE
     Indication: Product used for unknown indication
     Dosage: 300 MG, QD
     Route: 048
  7. METHYLPHENIDATE HYDROCHLORIDE [Concomitant]
     Active Substance: METHYLPHENIDATE HYDROCHLORIDE
     Indication: Product used for unknown indication
     Dosage: 70 MG, DAILY
     Route: 065

REACTIONS (33)
  - Myocardial injury [Unknown]
  - Myocardial infarction [Unknown]
  - Troponin increased [Unknown]
  - Poor personal hygiene [Unknown]
  - Intrusive thoughts [Not Recovered/Not Resolved]
  - Adverse drug reaction [Unknown]
  - Laryngitis [Unknown]
  - Paraesthesia [Unknown]
  - Amnesia [Not Recovered/Not Resolved]
  - Feeling abnormal [Not Recovered/Not Resolved]
  - Dysphonia [Unknown]
  - Hypoaesthesia [Unknown]
  - Wheezing [Unknown]
  - Sleep disorder [Unknown]
  - Memory impairment [Not Recovered/Not Resolved]
  - Cough [Not Recovered/Not Resolved]
  - Depressed mood [Not Recovered/Not Resolved]
  - Pain in extremity [Not Recovered/Not Resolved]
  - Chest discomfort [Not Recovered/Not Resolved]
  - Chest pain [Not Recovered/Not Resolved]
  - Arthralgia [Not Recovered/Not Resolved]
  - Restlessness [Not Recovered/Not Resolved]
  - Anxiety [Not Recovered/Not Resolved]
  - Fatigue [Unknown]
  - Tachycardia [Not Recovered/Not Resolved]
  - Nausea [Not Recovered/Not Resolved]
  - Vomiting [Not Recovered/Not Resolved]
  - Therapeutic product effect decreased [Unknown]
  - Inappropriate schedule of product administration [Unknown]
  - Product availability issue [Unknown]
  - Drug ineffective [Unknown]
  - Inappropriate schedule of product administration [Unknown]
  - Product dose omission issue [Unknown]

NARRATIVE: CASE EVENT DATE: 20210326
